FAERS Safety Report 20194955 (Version 1)
Quarter: 2021Q4

REPORT INFORMATION
  Report Type: Spontaneous
  Country: US (occurrence: US)
  Receive Date: 20211216
  Receipt Date: 20211216
  Transmission Date: 20220303
  Serious: Yes (Hospitalization)
  Sender: FDA-Public Use
  Company Number: US-PFIZER INC-202101697135

PATIENT
  Age: 7 Year
  Sex: Female

DRUGS (1)
  1. BESPONSA [Suspect]
     Active Substance: INOTUZUMAB OZOGAMICIN
     Indication: Acute lymphocytic leukaemia
     Dosage: 0.9 MG, CYCLIC (1 VIAL WEEKLY X 3 DOSES, EVERY 28 DAYS)
     Dates: start: 20211130

REACTIONS (3)
  - White blood cell count increased [Unknown]
  - Illness [Unknown]
  - Off label use [Unknown]

NARRATIVE: CASE EVENT DATE: 20211130
